FAERS Safety Report 7477502-7 (Version None)
Quarter: 2011Q2

REPORT INFORMATION
  Report Type: 
  Country: None (occurrence: None)
  Receive Date: 20110509
  Receipt Date: 20110509
  Transmission Date: 20111010
  Serious: Yes (Other)
  Sender: FDA-Public Use
  Company Number: None

PATIENT
  Sex: Female
  Weight: 47.6277 kg

DRUGS (1)
  1. TRIAD STERILE ALCOHOL PREP PADS [Suspect]
     Indication: MULTIPLE SCLEROSIS
     Dosage: 1 DAY
     Dates: start: 20110201, end: 20110426

REACTIONS (3)
  - PRURITUS [None]
  - TRANSMISSION OF AN INFECTIOUS AGENT VIA A MEDICINAL PRODUCT [None]
  - RASH [None]
